FAERS Safety Report 14481111 (Version 1)
Quarter: 2018Q1

REPORT INFORMATION
  Report Type: Spontaneous
  Country: US (occurrence: US)
  Receive Date: 20180202
  Receipt Date: 20180202
  Transmission Date: 20180509
  Serious: Yes (Other)
  Sender: FDA-Public Use
  Company Number: US-GLAXOSMITHKLINE-US2018015938

PATIENT
  Age: 34 Year
  Sex: Female

DRUGS (3)
  1. EQUATE NICOTINE [Suspect]
     Active Substance: NICOTINE
     Indication: PRODUCT USED FOR UNKNOWN INDICATION
     Dosage: 14 MG, UNK
  2. EQUATE NICOTINE [Suspect]
     Active Substance: NICOTINE
     Dosage: 14 UNK, UNK
  3. EQUATE NICOTINE [Suspect]
     Active Substance: NICOTINE
     Dosage: 14 UNK, UNK

REACTIONS (3)
  - Drug ineffective [Unknown]
  - Loss of consciousness [Unknown]
  - Cold sweat [Unknown]
